FAERS Safety Report 18411315 (Version 3)
Quarter: 2020Q4

REPORT INFORMATION
  Report Type: Spontaneous
  Country: US (occurrence: US)
  Receive Date: 20201021
  Receipt Date: 20201119
  Transmission Date: 20210114
  Serious: No
  Sender: FDA-Public Use
  Company Number: US-BAYER-2020-224768

PATIENT
  Age: 29 Year
  Sex: Female

DRUGS (1)
  1. ESTRADIOL HEMIHYDRATE [Suspect]
     Active Substance: ESTRADIOL HEMIHYDRATE
     Dosage: UNK
     Route: 062

REACTIONS (5)
  - Hot flush [None]
  - Weight decreased [None]
  - Device adhesion issue [None]
  - Application site burn [None]
  - Application site rash [None]
